FAERS Safety Report 7637032-6 (Version None)
Quarter: 2011Q3

REPORT INFORMATION
  Report Type: 
  Country: None (occurrence: None)
  Receive Date: 20110726
  Receipt Date: 20110712
  Transmission Date: 20111222
  Serious: Yes (Hospitalization)
  Sender: FDA-Public Use
  Company Number: JP-MYLANLABS-2011S1014428

PATIENT
  Age: 60 Year
  Sex: Female
  Weight: 58.2 kg

DRUGS (7)
  1. PRIMPERAN TAB [Concomitant]
     Indication: PRODUCT USED FOR UNKNOWN INDICATION
  2. MAGNESIUM SULFATE [Concomitant]
     Indication: PRODUCT USED FOR UNKNOWN INDICATION
     Route: 048
  3. CARBOPLATIN [Suspect]
     Indication: ADENOCARCINOMA OF THE CERVIX
     Route: 041
     Dates: start: 20110330, end: 20110330
  4. PACLITAXEL [Suspect]
     Indication: CERVIX CARCINOMA RECURRENT
     Route: 041
     Dates: start: 20101118, end: 20101118
  5. PURSENNID /00142207/ [Concomitant]
     Indication: PRODUCT USED FOR UNKNOWN INDICATION
     Route: 048
  6. PACLITAXEL [Suspect]
     Route: 041
     Dates: start: 20110330, end: 20110330
  7. PACLITAXEL [Suspect]
     Route: 041
     Dates: start: 20101209, end: 20101209

REACTIONS (1)
  - DRUG ERUPTION [None]
